FAERS Safety Report 14276360 (Version 2)
Quarter: 2018Q1

REPORT INFORMATION
  Report Type: Report from Study
  Country: US (occurrence: US)
  Receive Date: 20171212
  Receipt Date: 20180305
  Transmission Date: 20180508
  Serious: Yes (Hospitalization)
  Sender: FDA-Public Use
  Company Number: US-ASTRAZENECA-2017SF26361

PATIENT
  Age: 202 Day
  Sex: Male
  Weight: 5.9 kg

DRUGS (1)
  1. SYNAGIS [Suspect]
     Active Substance: PALIVIZUMAB
     Indication: RESPIRATORY SYNCYTIAL VIRUS INFECTION
     Route: 030
     Dates: start: 201711, end: 201802

REACTIONS (4)
  - Bronchitis [Unknown]
  - Respiratory syncytial virus infection [Unknown]
  - Pneumonia viral [Unknown]
  - Constipation [Unknown]

NARRATIVE: CASE EVENT DATE: 20171202
